FAERS Safety Report 11634135 (Version 1)
Quarter: 2015Q4

REPORT INFORMATION
  Report Type: Spontaneous
  Country: US (occurrence: US)
  Receive Date: 20151015
  Receipt Date: 20151015
  Transmission Date: 20160304
  Serious: No
  Sender: FDA-Public Use
  Company Number: US-INDIVIOR-RB-73321-2014

PATIENT
  Age: 28 Year
  Sex: Female

DRUGS (1)
  1. SUBOXONE [Suspect]
     Active Substance: BUPRENORPHINE HYDROCHLORIDE\NALOXONE HYDROCHLORIDE
     Indication: PAIN
     Dosage: UNKNOWN
     Route: 065

REACTIONS (3)
  - Off label use [Not Recovered/Not Resolved]
  - Maternal exposure during pregnancy [Unknown]
  - Hepatic enzyme abnormal [Not Recovered/Not Resolved]

NARRATIVE: CASE EVENT DATE: 201408
